FAERS Safety Report 9223080 (Version 1)
Quarter: 2013Q2

REPORT INFORMATION
  Report Type: Report from Study
  Country: PL (occurrence: PL)
  Receive Date: 20130410
  Receipt Date: 20130410
  Transmission Date: 20140414
  Serious: Yes (Other)
  Sender: FDA-Public Use
  Company Number: PL-ROCHE-1211130

PATIENT
  Sex: 0

DRUGS (4)
  1. CELLCEPT [Suspect]
     Indication: PRODUCT USED FOR UNKNOWN INDICATION
     Route: 065
  2. ADVAGRAF [Concomitant]
     Route: 065
  3. ENCORTON [Concomitant]
     Route: 065
  4. CERTICAN [Concomitant]

REACTIONS (1)
  - Nephropathy toxic [Unknown]
